FAERS Safety Report 7396090-7 (Version None)
Quarter: 2011Q2

REPORT INFORMATION
  Report Type: 
  Country: None (occurrence: None)
  Receive Date: 20110406
  Receipt Date: 20110323
  Transmission Date: 20111010
  Serious: Yes (Other)
  Sender: FDA-Public Use
  Company Number: NL-AMGEN-NLDSP2011003162

PATIENT
  Age: 45 Year
  Sex: Female
  Weight: 63 kg

DRUGS (4)
  1. ENBREL [Suspect]
     Indication: PSORIATIC ARTHROPATHY
     Dosage: 50 MG, WEEKLY
     Route: 058
     Dates: start: 20101124
  2. MTX                                /00113801/ [Concomitant]
     Dosage: UNK
  3. FOLIC ACID [Concomitant]
     Dosage: UNK
  4. OMEPRAZOLE [Concomitant]
     Dosage: UNK

REACTIONS (7)
  - FEELING ABNORMAL [None]
  - RASH [None]
  - EPISTAXIS [None]
  - LACRIMATION INCREASED [None]
  - DEPRESSED MOOD [None]
  - LEUKOCYTOCLASTIC VASCULITIS [None]
  - PRURITUS [None]
